FAERS Safety Report 21122649 (Version 1)
Quarter: 2022Q3

REPORT INFORMATION
  Report Type: Spontaneous
  Country: US (occurrence: US)
  Receive Date: 20220723
  Receipt Date: 20220723
  Transmission Date: 20221027
  Serious: No
  Sender: FDA-Public Use
  Company Number: US-BRISTOL-MYERS SQUIBB COMPANY-2022-078608

PATIENT
  Age: 55 Year
  Sex: Female
  Weight: 88 kg

DRUGS (1)
  1. ELIQUIS [Suspect]
     Active Substance: APIXABAN
     Indication: Deep vein thrombosis
     Route: 048

REACTIONS (4)
  - Extra dose administered [Unknown]
  - Dizziness [Unknown]
  - Fatigue [Unknown]
  - Panic reaction [Unknown]

NARRATIVE: CASE EVENT DATE: 20220721
